FAERS Safety Report 5397751-1 (Version None)
Quarter: 2007Q3

REPORT INFORMATION
  Report Type: 
  Country: None (occurrence: None)
  Receive Date: 20070726
  Receipt Date: 20070720
  Transmission Date: 20080115
  Serious: Yes (Other)
  Sender: FDA-Public Use
  Company Number: A0665384A

PATIENT
  Age: 65 Year
  Sex: Male

DRUGS (6)
  1. SEREVENT [Suspect]
     Indication: ASTHMA
     Dosage: 1PUFF TWICE PER DAY
     Route: 055
     Dates: start: 19940101
  2. PREDNISONE [Concomitant]
  3. AVELOX [Concomitant]
  4. DUONEB [Concomitant]
  5. ALBUTEROL [Concomitant]
  6. FLOVENT [Concomitant]

REACTIONS (5)
  - COUGH [None]
  - DRUG INEFFECTIVE [None]
  - LOBAR PNEUMONIA [None]
  - PHARMACEUTICAL PRODUCT COMPLAINT [None]
  - WHEEZING [None]
